FAERS Safety Report 11309584 (Version 1)
Quarter: 2015Q3

REPORT INFORMATION
  Report Type: Spontaneous
  Country: IT (occurrence: IT)
  Receive Date: 20150724
  Receipt Date: 20150724
  Transmission Date: 20151125
  Serious: Yes (Hospitalization, Other)
  Sender: FDA-Public Use
  Company Number: IT-009507513-1507ITA009661

PATIENT
  Age: 38 Year
  Sex: Female

DRUGS (3)
  1. GONADOTROPIN, CHORIONIC [Suspect]
     Active Substance: CHORIOGONADOTROPIN ALFA
     Indication: OVULATION INDUCTION
  2. MENOTROPINS [Suspect]
     Active Substance: MENOTROPINS
     Indication: OVULATION INDUCTION
  3. GONADORELIN [Suspect]
     Active Substance: GONADORELIN
     Indication: OVULATION INDUCTION

REACTIONS (1)
  - Acute respiratory failure [Recovered/Resolved]
